FAERS Safety Report 23789414 (Version 2)
Quarter: 2024Q2

REPORT INFORMATION
  Report Type: Spontaneous
  Country: CN (occurrence: None)
  Receive Date: 20240426
  Receipt Date: 20240501
  Transmission Date: 20240716
  Serious: Yes (Other)
  Sender: FDA-Public Use
  Company Number: 2024A098309

PATIENT
  Age: 85 Year
  Sex: Female

DRUGS (4)
  1. DAPAGLIFLOZIN [Suspect]
     Active Substance: DAPAGLIFLOZIN
     Indication: Blood glucose abnormal
     Route: 048
  2. DAPAGLIFLOZIN [Suspect]
     Active Substance: DAPAGLIFLOZIN
     Indication: Blood glucose abnormal
     Route: 048
  3. GLIMEPIRIDE [Concomitant]
     Active Substance: GLIMEPIRIDE
     Dosage: 1.0DF UNKNOWN
  4. GLUCOBAY [Concomitant]
     Active Substance: ACARBOSE
     Dosage: ONE TABLET OR TWO TABLETS

REACTIONS (9)
  - Suicidal ideation [Unknown]
  - Vertigo [Unknown]
  - Blood glucose fluctuation [Unknown]
  - Fracture [Unknown]
  - Decreased appetite [Unknown]
  - Nausea [Unknown]
  - Vomiting [Unknown]
  - Hypophagia [Unknown]
  - Wrong technique in product usage process [Unknown]
